FAERS Safety Report 8724884 (Version 3)
Quarter: 2013Q4

REPORT INFORMATION
  Report Type: Spontaneous
  Country: US (occurrence: US)
  Receive Date: 20120815
  Receipt Date: 20131017
  Transmission Date: 20140711
  Serious: Yes (Other)
  Sender: FDA-Public Use
  Company Number: US-FRI-1000037710

PATIENT
  Age: 78 Year
  Sex: Male

DRUGS (10)
  1. VIIBRYD [Suspect]
     Indication: DEPRESSION
     Dosage: 10 MG
     Route: 048
     Dates: start: 201112
  2. VIIBRYD [Suspect]
     Dosage: 20 MG
     Route: 048
     Dates: end: 201202
  3. VIIBRYD [Suspect]
     Indication: DEPRESSION
     Dosage: 40 MG
     Route: 048
     Dates: start: 201202, end: 201207
  4. VIIBRYD [Suspect]
     Dates: start: 201207, end: 201208
  5. WARFARIN [Concomitant]
     Indication: ATRIAL FIBRILLATION
  6. WARFARIN [Concomitant]
     Indication: DEEP VEIN THROMBOSIS
  7. CARDIZEM [Concomitant]
     Indication: ATRIAL FIBRILLATION
  8. FLOMAX [Concomitant]
  9. LIPITOR [Concomitant]
     Dates: start: 1996, end: 201207
  10. RANITIDINE [Concomitant]

REACTIONS (2)
  - Blood creatinine increased [Recovering/Resolving]
  - Glomerular filtration rate decreased [Unknown]
